FAERS Safety Report 8135995-6 (Version None)
Quarter: 2012Q1

REPORT INFORMATION
  Report Type: 
  Country: None (occurrence: None)
  Receive Date: 20120214
  Receipt Date: 20120207
  Transmission Date: 20120608
  Serious: Yes (Other)
  Sender: FDA-Public Use
  Company Number: US-BAYER-2011-089557

PATIENT
  Age: 40 Year
  Sex: Female

DRUGS (6)
  1. PROTONIX [Concomitant]
     Dosage: 40 MG, QD
     Route: 048
  2. YASMIN [Suspect]
     Dosage: UNK
     Dates: start: 20050401, end: 20080901
  3. FEXOFENADINE HYDROCHLORIDE [Concomitant]
     Dosage: 180 MG, QD
     Route: 048
     Dates: start: 20080903
  4. YAZ [Suspect]
     Dosage: UNK
     Dates: start: 20050401, end: 20080901
  5. IBUPROFEN [Concomitant]
     Dosage: 800 MG, UNK
  6. FLONASE [Concomitant]
     Dosage: 50 MCG, BID
     Route: 055
     Dates: start: 20080903

REACTIONS (7)
  - INJURY [None]
  - EMOTIONAL DISTRESS [None]
  - GALLBLADDER INJURY [None]
  - PAIN [None]
  - ANXIETY [None]
  - GENERAL PHYSICAL HEALTH DETERIORATION [None]
  - CHOLECYSTITIS CHRONIC [None]
